FAERS Safety Report 6968559-8 (Version None)
Quarter: 2010Q3

REPORT INFORMATION
  Report Type: 
  Country: None (occurrence: None)
  Receive Date: 20100907
  Receipt Date: 20100829
  Transmission Date: 20110219
  Serious: Yes (Other)
  Sender: FDA-Public Use
  Company Number: US-JNJFOC-20100900928

PATIENT
  Sex: Female
  Weight: 47.17 kg

DRUGS (1)
  1. ORTHO TRI-CYCLEN LO [Suspect]
     Indication: CONTRACEPTION
     Route: 048

REACTIONS (5)
  - ACNE [None]
  - HYPERSOMNIA [None]
  - MYALGIA [None]
  - PYREXIA [None]
  - SKIN HAEMORRHAGE [None]
